FAERS Safety Report 7605746-X (Version None)
Quarter: 2011Q3

REPORT INFORMATION
  Report Type: 
  Country: None (occurrence: None)
  Receive Date: 20110713
  Receipt Date: 20110713
  Transmission Date: 20111222
  Serious: Yes (Life-Threatening, Hospitalization)
  Sender: FDA-Public Use
  Company Number: None

PATIENT
  Age: 48 Year
  Sex: Male
  Weight: 73.481 kg

DRUGS (9)
  1. ATENOLOL [Interacting]
     Indication: HYPERTENSION
     Route: 048
  2. ENALAPRIL MALEATE [Interacting]
     Indication: HYPERTENSION
     Route: 048
  3. NUCYNTA [Suspect]
     Indication: BACK PAIN
     Dosage: 75MG X ~37 TABLETS
     Route: 048
     Dates: start: 20110615, end: 20110615
  4. SIMVASTATIN [Interacting]
     Indication: HYPERLIPIDAEMIA
     Route: 048
  5. ESOMEPRAZOLE MAGNESIUM [Interacting]
     Indication: GASTROOESOPHAGEAL REFLUX DISEASE
     Route: 048
  6. METHADONE HCL [Interacting]
     Indication: PAIN
     Route: 048
  7. OXYCONTIN [Interacting]
  8. ACETAMINOPHEN [Interacting]
     Indication: PAIN
     Route: 048
  9. SENNA [Interacting]
     Indication: CONSTIPATION
     Route: 048

REACTIONS (9)
  - TREATMENT NONCOMPLIANCE [None]
  - MIOSIS [None]
  - SEROTONIN SYNDROME [None]
  - FALL [None]
  - UNRESPONSIVE TO STIMULI [None]
  - DRUG INTERACTION [None]
  - AGITATION [None]
  - OVERDOSE [None]
  - RESTLESSNESS [None]
